FAERS Safety Report 20092816 (Version 1)
Quarter: 2021Q4

REPORT INFORMATION
  Report Type: Spontaneous
  Country: US (occurrence: US)
  Receive Date: 20211120
  Receipt Date: 20211120
  Transmission Date: 20220303
  Serious: Yes (Hospitalization)
  Sender: FDA-Public Use
  Company Number: US-UNITED THERAPEUTICS-UNT-2021-023306

PATIENT
  Age: 76 Year
  Sex: Female
  Weight: 56.689 kg

DRUGS (2)
  1. REMODULIN [Suspect]
     Active Substance: TREPROSTINIL
     Indication: Pulmonary arterial hypertension
     Dosage: UNK, CONTINUING
     Route: 058
     Dates: start: 20120604
  2. REMODULIN [Suspect]
     Active Substance: TREPROSTINIL
     Dosage: 0.086 ?G/KG, CONTINUING
     Route: 058

REACTIONS (3)
  - Dehydration [Unknown]
  - Diarrhoea [Unknown]
  - Headache [Unknown]

NARRATIVE: CASE EVENT DATE: 20211002
